FAERS Safety Report 6393822-1 (Version None)
Quarter: 2009Q4

REPORT INFORMATION
  Report Type: 
  Country: None (occurrence: None)
  Receive Date: 20091008
  Receipt Date: 20090925
  Transmission Date: 20100525
  Serious: Yes (Other)
  Sender: FDA-Public Use
  Company Number: US-PFIZER INC-2009274841

PATIENT

DRUGS (1)
  1. CELEBREX [Suspect]

REACTIONS (3)
  - ANAPHYLACTIC SHOCK [None]
  - BRAIN OEDEMA [None]
  - HEMIPARESIS [None]
